FAERS Safety Report 5084684-3 (Version None)
Quarter: 2006Q3

REPORT INFORMATION
  Report Type: 
  Country: None (occurrence: None)
  Receive Date: 20060818
  Receipt Date: 20060818
  Transmission Date: 20061208
  Serious: No
  Sender: FDA-Public Use
  Company Number: None

PATIENT
  Sex: Male
  Weight: 79.3795 kg

DRUGS (6)
  1. LORATADINE [Suspect]
     Indication: RHINITIS ALLERGIC
     Dosage: LORATADINE 10MG PO
     Route: 048
     Dates: start: 20030701, end: 20050323
  2. ALENDRONATE SODIUM [Concomitant]
  3. FLUNISOLIDE [Concomitant]
  4. NIACIN -NIASPAN-KOS [Concomitant]
  5. COLESTIPOL HCL [Concomitant]
  6. FLUTICASONE PROP [Concomitant]

REACTIONS (1)
  - MYALGIA [None]
